FAERS Safety Report 9781151 (Version 1)
Quarter: 2013Q4

REPORT INFORMATION
  Report Type: Spontaneous
  Country: IT (occurrence: IT)
  Receive Date: 20131224
  Receipt Date: 20131224
  Transmission Date: 20140711
  Serious: Yes (Other)
  Sender: FDA-Public Use
  Company Number: IT-WATSON-2013-23024

PATIENT
  Age: 20 Year
  Sex: Male

DRUGS (2)
  1. DEXAMETHASONE (UNKNOWN) [Suspect]
     Indication: MENINGIOMA
     Dosage: LOW DOSE
     Route: 065
  2. DEXAMETHASONE (UNKNOWN) [Suspect]
     Indication: DIPLOPIA

REACTIONS (1)
  - Osteonecrosis [Unknown]
